FAERS Safety Report 4892083-X (Version None)
Quarter: 2006Q1

REPORT INFORMATION
  Report Type: 
  Country: None (occurrence: None)
  Receive Date: 20060126
  Receipt Date: 20060116
  Transmission Date: 20060701
  Serious: Yes (Disabling)
  Sender: FDA-Public Use
  Company Number: FR-BRISTOL-MYERS SQUIBB COMPANY-13249735

PATIENT
  Age: 82 Year
  Sex: Male
  Weight: 63 kg

DRUGS (7)
  1. APROVEL [Suspect]
     Indication: ESSENTIAL HYPERTENSION
     Route: 048
  2. DEPAKENE [Suspect]
     Indication: EPILEPSY
     Dates: start: 20040101, end: 20050701
  3. EBIXA [Suspect]
     Indication: PSYCHOTIC DISORDER
     Dates: start: 20041001
  4. FUROSEMIDE [Suspect]
     Indication: ESSENTIAL HYPERTENSION
  5. MICROPAKINE [Suspect]
     Indication: EPILEPSY
     Dates: start: 20050701, end: 20051118
  6. TANAKAN [Suspect]
     Indication: PSYCHOTIC DISORDER
     Dosage: DOSAGE FOR = PIPETTES
  7. DOLIPRANE [Concomitant]

REACTIONS (3)
  - CONFUSIONAL STATE [None]
  - EXTRAPYRAMIDAL DISORDER [None]
  - GAIT DISTURBANCE [None]
